FAERS Safety Report 17649188 (Version 1)
Quarter: 2020Q2

REPORT INFORMATION
  Report Type: Spontaneous
  Country: US (occurrence: US)
  Receive Date: 20200409
  Receipt Date: 20200409
  Transmission Date: 20200713
  Serious: No
  Sender: FDA-Public Use
  Company Number: US-JNJFOC-20200328571

PATIENT
  Age: 87 Year
  Sex: Female
  Weight: 88.53 kg

DRUGS (1)
  1. TYLENOL 8 HR ARTHRITIS PAIN [Suspect]
     Active Substance: ACETAMINOPHEN
     Indication: ARTHRALGIA
     Dosage: 2 PILLS 2X PER DAY
     Route: 048
     Dates: start: 2020, end: 2020

REACTIONS (3)
  - Rash pruritic [Recovering/Resolving]
  - Blister [Recovered/Resolved]
  - Inappropriate schedule of product administration [Unknown]

NARRATIVE: CASE EVENT DATE: 2020
